FAERS Safety Report 18494213 (Version 2)
Quarter: 2020Q4

REPORT INFORMATION
  Report Type: Report from Study
  Country: BR (occurrence: BR)
  Receive Date: 20201111
  Receipt Date: 20201117
  Transmission Date: 20210114
  Serious: Yes (Hospitalization, Other)
  Sender: FDA-Public Use
  Company Number: BR-TAKEDA-BR201927841

PATIENT
  Age: 16 Year
  Sex: Male
  Weight: 90 kg

DRUGS (7)
  1. HEMO-8R [Suspect]
     Active Substance: ANTIHEMOPHILIC FACTOR, HUMAN RECOMBINANT
     Dosage: 2500 INTERNATIONAL UNIT, QOD
     Route: 042
     Dates: start: 20160101
  2. HEMO-8R [Suspect]
     Active Substance: ANTIHEMOPHILIC FACTOR, HUMAN RECOMBINANT
     Indication: FACTOR VIII DEFICIENCY
     Dosage: UNK, 2X A WEEK, MONDAYS AND THURSDAYS
     Route: 050
     Dates: start: 20160101
  3. HEMO-8R [Suspect]
     Active Substance: ANTIHEMOPHILIC FACTOR, HUMAN RECOMBINANT
     Dosage: 9000 INTERNATIONAL UNIT, UNKNOWN,
     Route: 050
  4. HEMO-8R [Suspect]
     Active Substance: ANTIHEMOPHILIC FACTOR, HUMAN RECOMBINANT
     Dosage: 5000 INTERNATIONAL UNIT, 2X/DAY:BID
     Route: 050
  5. HEMO-8R [Suspect]
     Active Substance: ANTIHEMOPHILIC FACTOR, HUMAN RECOMBINANT
     Dosage: 5000 INTERNATIONAL UNIT, 1X/DAY:QD
     Route: 050
  6. HEMO-8R [Suspect]
     Active Substance: ANTIHEMOPHILIC FACTOR, HUMAN RECOMBINANT
     Dosage: 2500 INTERNATIONAL UNIT, QOD
     Route: 065
  7. HEMO-8R [Suspect]
     Active Substance: ANTIHEMOPHILIC FACTOR, HUMAN RECOMBINANT
     Dosage: 5000 INTERNATIONAL UNIT, 3X/DAY:TID
     Route: 050

REACTIONS (5)
  - Osteoarthritis [Recovering/Resolving]
  - Ankle operation [Recovered/Resolved]
  - Haemarthrosis [Recovered/Resolved]
  - Bone deformity [Unknown]
  - Weight decreased [Unknown]

NARRATIVE: CASE EVENT DATE: 201908
